FAERS Safety Report 7276408-6 (Version None)
Quarter: 2011Q1

REPORT INFORMATION
  Report Type: 
  Country: None (occurrence: None)
  Receive Date: 20110204
  Receipt Date: 20110124
  Transmission Date: 20110831
  Serious: Yes (Other)
  Sender: FDA-Public Use
  Company Number: ES-ELI_LILLY_AND_COMPANY-ES200910001024

PATIENT
  Age: 50 Year
  Sex: Male
  Weight: 65 kg

DRUGS (5)
  1. CARDYL [Concomitant]
  2. ZYLORIC [Concomitant]
  3. BYETTA [Suspect]
     Indication: TYPE 2 DIABETES MELLITUS
     Dosage: 5 UG, UNKNOWN
     Route: 058
     Dates: start: 20090924
  4. ADIRO [Concomitant]
  5. ENALAPRIL MALEATE [Concomitant]

REACTIONS (3)
  - OFF LABEL USE [None]
  - KETOACIDOSIS [None]
  - LEUKOCYTOSIS [None]
